FAERS Safety Report 6917838-9 (Version None)
Quarter: 2010Q3

REPORT INFORMATION
  Report Type: 
  Country: None (occurrence: None)
  Receive Date: 20100810
  Receipt Date: 20090602
  Transmission Date: 20110219
  Serious: Yes (Other)
  Sender: FDA-Public Use
  Company Number: US-PFIZER INC-2009201559

PATIENT

DRUGS (1)
  1. TOVIAZ [Suspect]

REACTIONS (1)
  - HEART RATE INCREASED [None]
